FAERS Safety Report 8655474 (Version 2)
Quarter: 2012Q4

REPORT INFORMATION
  Report Type: 
  Country: US (occurrence: US)
  Receive Date: 20120709
  Receipt Date: 20120912
  Transmission Date: 20130627
  Serious: Yes (Hospitalization)
  Sender: FDA-Public Use
  Company Number: US-ALLERGAN-1209093US

PATIENT
  Sex: Female

DRUGS (1)
  1. BOTOX� [Suspect]
     Indication: MIGRAINE
     Dosage: 175 UNITS, single
     Route: 030
     Dates: start: 20120613, end: 20120613

REACTIONS (2)
  - Dizziness [Unknown]
  - Dizziness [Unknown]
